FAERS Safety Report 9428902 (Version 1)
Quarter: 2013Q3

REPORT INFORMATION
  Report Type: Report from Study
  Country: US (occurrence: US)
  Receive Date: 20130730
  Receipt Date: 20130730
  Transmission Date: 20140515
  Serious: No
  Sender: FDA-Public Use
  Company Number: US-ABBOTT-13P-163-1041889-00

PATIENT
  Sex: Male
  Weight: 83.08 kg

DRUGS (10)
  1. NIASPAN (COATED) [Suspect]
     Indication: LOW DENSITY LIPOPROTEIN INCREASED
     Dosage: IN THE MORNING
  2. NIASPAN (COATED) [Suspect]
     Indication: HIGH DENSITY LIPOPROTEIN DECREASED
  3. COUMADIN [Concomitant]
     Indication: PRODUCT USED FOR UNKNOWN INDICATION
  4. FISH OIL [Concomitant]
     Indication: PRODUCT USED FOR UNKNOWN INDICATION
  5. PALMETTO [Concomitant]
     Indication: PRODUCT USED FOR UNKNOWN INDICATION
  6. CRESTOR [Concomitant]
     Indication: PRODUCT USED FOR UNKNOWN INDICATION
  7. TYLENOL EXTRA STRENGTH [Concomitant]
     Indication: BACK PAIN
  8. UNKNOWN MEDICATION [Concomitant]
     Indication: HYPERTENSION
  9. UNKNOWN MEDICATION [Concomitant]
     Indication: ANXIETY
  10. ASA [Concomitant]
     Dosage: AT BEDTIME

REACTIONS (1)
  - Flushing [Unknown]
